FAERS Safety Report 23979469 (Version 1)
Quarter: 2024Q2

REPORT INFORMATION
  Report Type: Other
  Country: BG (occurrence: BG)
  Receive Date: 20240615
  Receipt Date: 20240615
  Transmission Date: 20240716
  Serious: Yes (Hospitalization, Other)
  Sender: FDA-Public Use
  Company Number: BG-Marksans Pharma Limited-2158172

PATIENT
  Age: 71 Year
  Sex: Male

DRUGS (6)
  1. METFORMIN HYDROCHLORIDE [Suspect]
     Active Substance: METFORMIN HYDROCHLORIDE
     Indication: Diabetes mellitus
     Route: 065
     Dates: start: 2008, end: 2016
  2. METFORMIN HYDROCHLORIDE\SITAGLIPTIN PHOSPHATE [Suspect]
     Active Substance: METFORMIN HYDROCHLORIDE\SITAGLIPTIN PHOSPHATE
     Route: 065
     Dates: start: 2016
  3. SERENOAE REPENTIS FRUCTUS EXTRACTUM SPISSUM [Concomitant]
     Route: 065
  4. THIOCTIC ACID [Concomitant]
     Active Substance: THIOCTIC ACID
     Route: 065
     Dates: start: 2023
  5. GLICLAZIDE [Concomitant]
     Active Substance: GLICLAZIDE
     Route: 065
  6. GLIMEPIRIDE [Concomitant]
     Active Substance: GLIMEPIRIDE
     Route: 065
     Dates: end: 2023

REACTIONS (1)
  - Nodular melanoma [Unknown]
